FAERS Safety Report 5677909-4 (Version None)
Quarter: 2008Q1

REPORT INFORMATION
  Report Type: 
  Country: None (occurrence: None)
  Receive Date: 20080319
  Receipt Date: 20080306
  Transmission Date: 20080703
  Serious: Yes (Other)
  Sender: FDA-Public Use
  Company Number: 230062M08USA

PATIENT
  Age: 50 Year
  Sex: Female

DRUGS (3)
  1. REBIF [Suspect]
     Indication: MULTIPLE SCLEROSIS
     Dates: start: 20070101, end: 20070101
  2. SYNTHROID [Concomitant]
  3. TAMOXIFEN (TAMOXIFEN /00388701/) [Concomitant]

REACTIONS (4)
  - AUTOIMMUNE HEPATITIS [None]
  - BLINDNESS [None]
  - MULTIPLE SCLEROSIS RELAPSE [None]
  - SPEECH DISORDER [None]
